FAERS Safety Report 15230859 (Version 1)
Quarter: 2018Q3

REPORT INFORMATION
  Report Type: Spontaneous
  Country: US (occurrence: US)
  Receive Date: 20180802
  Receipt Date: 20180802
  Transmission Date: 20181010
  Serious: Yes (Hospitalization)
  Sender: FDA-Public Use
  Company Number: US-SUN PHARMACEUTICAL INDUSTRIES LTD-2018US-180185

PATIENT
  Age: 25 Year
  Sex: Male

DRUGS (4)
  1. TRAMADOL. [Suspect]
     Active Substance: TRAMADOL
     Indication: STILL^S DISEASE
     Dosage: UNK
     Route: 065
  2. CLARITHROMYCIN. [Suspect]
     Active Substance: CLARITHROMYCIN
     Indication: STILL^S DISEASE
     Dosage: UNK
     Route: 065
  3. CLARITHROMYCIN. [Suspect]
     Active Substance: CLARITHROMYCIN
     Indication: DENTAL OPERATION
  4. TRAMADOL. [Suspect]
     Active Substance: TRAMADOL
     Indication: DENTAL OPERATION

REACTIONS (3)
  - Stevens-Johnson syndrome [Recovering/Resolving]
  - Pneumothorax [Unknown]
  - Pneumomediastinum [Recovered/Resolved]
